FAERS Safety Report 24277152 (Version 1)
Quarter: 2024Q3

REPORT INFORMATION
  Report Type: Spontaneous
  Country: FR (occurrence: FR)
  Receive Date: 20240903
  Receipt Date: 20240903
  Transmission Date: 20241017
  Serious: Yes (Other)
  Sender: GILEAD
  Company Number: FR-GILEAD-2024-0686004

PATIENT
  Sex: Male

DRUGS (2)
  1. ODEFSEY [Suspect]
     Active Substance: EMTRICITABINE\RILPIVIRINE HYDROCHLORIDE\TENOFOVIR ALAFENAMIDE FUMARATE
     Indication: HIV infection
     Dosage: UNK
     Route: 065
  2. VIT D [VITAMIN D NOS] [Concomitant]
     Dosage: DOSE INCREASED

REACTIONS (11)
  - Catatonia [Unknown]
  - Skin disorder [Unknown]
  - Arthralgia [Unknown]
  - Eating disorder [Unknown]
  - Depression [Unknown]
  - Sleep disorder [Unknown]
  - Abnormal dreams [Unknown]
  - Vomiting [Unknown]
  - Nausea [Unknown]
  - Flatulence [Unknown]
  - Dizziness [Unknown]
